FAERS Safety Report 19067217 (Version 1)
Quarter: 2021Q1

REPORT INFORMATION
  Report Type: Spontaneous
  Country: US (occurrence: US)
  Receive Date: 20210329
  Receipt Date: 20210329
  Transmission Date: 20210420
  Serious: No
  Sender: FDA-Public Use
  Company Number: US-BAUSCH-BL-2021-007694

PATIENT
  Age: 94 Year
  Sex: Female

DRUGS (3)
  1. DORZOLAMIDE HYDROCHLORIDE OPHTHALMIC SOLUTION 2% [Suspect]
     Active Substance: DORZOLAMIDE HYDROCHLORIDE
     Indication: GLAUCOMA
     Route: 047
  2. LISINOPRIL. [Concomitant]
     Active Substance: LISINOPRIL
     Indication: PRODUCT USED FOR UNKNOWN INDICATION
  3. NIFEDIPINE. [Concomitant]
     Active Substance: NIFEDIPINE
     Indication: PRODUCT USED FOR UNKNOWN INDICATION

REACTIONS (7)
  - Contusion [Unknown]
  - Eye swelling [Unknown]
  - Eye pruritus [Unknown]
  - Eye irritation [Unknown]
  - Hypersensitivity [Unknown]
  - Product quality issue [Unknown]
  - Skin reaction [Unknown]

NARRATIVE: CASE EVENT DATE: 20210228
